FAERS Safety Report 7728116-2 (Version None)
Quarter: 2011Q3

REPORT INFORMATION
  Report Type: 
  Country: None (occurrence: None)
  Receive Date: 20110905
  Receipt Date: 20110829
  Transmission Date: 20111222
  Serious: Yes (Other)
  Sender: FDA-Public Use
  Company Number: CA-SHIRE-ALL1-2011-02989

PATIENT
  Sex: Female

DRUGS (8)
  1. VYVANSE [Suspect]
     Dosage: UNK UNK, 1X/DAY:QD
     Route: 048
     Dates: start: 20110101, end: 20110701
  2. VYVANSE [Suspect]
     Dosage: 30 MG, 1X/DAY:QD
     Route: 048
     Dates: start: 20110301, end: 20110101
  3. VYVANSE [Suspect]
     Dosage: 30 MG, 1X/DAY:QD
     Route: 048
     Dates: start: 20110701, end: 20110813
  4. TRAZODONE HCL [Suspect]
     Indication: INSOMNIA
     Dosage: 50 MG, OTHER (50-100MG HS)
     Route: 065
  5. PRISTIQ [Concomitant]
     Dosage: 50 MG, UNKNOWN
     Route: 065
     Dates: start: 20110101
  6. VYVANSE [Suspect]
     Indication: ATTENTION DEFICIT/HYPERACTIVITY DISORDER
     Dosage: 20 MG, 1X/DAY:QD
     Route: 048
     Dates: start: 20110201, end: 20110101
  7. PRISTIQ [Concomitant]
     Indication: PRODUCT USED FOR UNKNOWN INDICATION
     Dosage: 50 MG, UNKNOWN
     Route: 065
     Dates: start: 20101201, end: 20110101
  8. PRISTIQ [Concomitant]
     Dosage: 100 MG, UNKNOWN
     Route: 065
     Dates: start: 20110101, end: 20110101

REACTIONS (5)
  - TACHYCARDIA [None]
  - SUICIDAL IDEATION [None]
  - DEPRESSION [None]
  - INCORRECT DOSE ADMINISTERED [None]
  - PALPITATIONS [None]
